FAERS Safety Report 14711111 (Version 5)
Quarter: 2018Q4

REPORT INFORMATION
  Report Type: Report from Study
  Country: GB (occurrence: GB)
  Receive Date: 20180403
  Receipt Date: 20181203
  Transmission Date: 20190204
  Serious: Yes (Life-Threatening, Hospitalization, Other)
  Sender: FDA-Public Use
  Company Number: GB-SA-2018SA091453

PATIENT
  Age: 25 Year
  Sex: Female
  Weight: 77 kg

DRUGS (8)
  1. INSULIN GLARGINE [Suspect]
     Active Substance: INSULIN GLARGINE
     Indication: TYPE 1 DIABETES MELLITUS
     Dosage: 30 U, QD
     Route: 058
  2. NOVORAPID [Suspect]
     Active Substance: INSULIN ASPART
     Indication: TYPE 1 DIABETES MELLITUS
     Dosage: 20 U, QD
     Route: 058
     Dates: start: 20110315
  3. ACTRAPID [Concomitant]
     Active Substance: INSULIN HUMAN
     Dosage: UNK UNK, UNK
     Dates: start: 20180301, end: 20180302
  4. INSULIN GLARGINE [Suspect]
     Active Substance: INSULIN GLARGINE
     Dosage: 16 U, QD
     Route: 058
     Dates: start: 20110315
  5. ACETYLSALICYLIC ACID [Concomitant]
     Active Substance: ASPIRIN
     Dosage: UNK UNK,UNK
     Route: 065
     Dates: start: 20171116
  6. BETAMETHASONE. [Concomitant]
     Active Substance: BETAMETHASONE
     Dosage: UNK UNK,UNK
     Route: 065
     Dates: start: 20180301, end: 20180302
  7. FOLIC ACID. [Concomitant]
     Active Substance: FOLIC ACID
     Dosage: UNK UNK,UNK
     Route: 065
     Dates: start: 20170102
  8. THYROXIN [Concomitant]
     Active Substance: LEVOTHYROXINE
     Dosage: UNK UNK,UNK
     Route: 065
     Dates: start: 20120410

REACTIONS (3)
  - Decreased insulin requirement [Recovered/Resolved]
  - Foetal disorder [Recovered/Resolved]
  - Exposure during pregnancy [Unknown]

NARRATIVE: CASE EVENT DATE: 20170814
